FAERS Safety Report 18922710 (Version 1)
Quarter: 2021Q1

REPORT INFORMATION
  Report Type: Spontaneous
  Country: US (occurrence: US)
  Receive Date: 20210222
  Receipt Date: 20210222
  Transmission Date: 20210420
  Serious: Yes (Death)
  Sender: FDA-Public Use
  Company Number: None

PATIENT
  Age: 81 Year
  Sex: Female
  Weight: 79.8 kg

DRUGS (14)
  1. BUDESONIDE 0.5 MG NEBS [Concomitant]
     Dates: start: 20201201, end: 20210217
  2. CETIRIZINE [Concomitant]
     Active Substance: CETIRIZINE HYDROCHLORIDE
     Dates: start: 20200527, end: 20210217
  3. BAMLANIVIMAB. [Suspect]
     Active Substance: BAMLANIVIMAB
     Indication: COVID-19
     Dosage: ?          OTHER FREQUENCY:ONE TIME;?
     Route: 041
     Dates: start: 20210217, end: 20210217
  4. ASPRIIN 81 MG [Concomitant]
     Dates: start: 20201201, end: 20210218
  5. DEXAMETHASONE 6 MG TABLETS [Concomitant]
     Dates: start: 20210215, end: 20210218
  6. ARFORMOTEROL 15 MCG NEBS [Concomitant]
     Dates: start: 20200814, end: 20210217
  7. LISINOPRIL 20 MG [Concomitant]
     Active Substance: LISINOPRIL
     Dates: start: 20200605, end: 20210218
  8. FUROSEMIDE 20 MG TABLETS [Concomitant]
     Dates: start: 20201119, end: 20210218
  9. FLUTICASONE NASAL SPRAY [Concomitant]
     Active Substance: FLUTICASONE
     Dates: start: 20161201, end: 20210217
  10. METOPROLOL 12.5 MG BID [Concomitant]
     Dates: start: 20170605, end: 20210218
  11. TIOTROPIUM INHALER [Concomitant]
     Active Substance: TIOTROPIUM
     Dates: start: 20200527, end: 20210217
  12. ALBUTEROL INHALER [Concomitant]
     Active Substance: ALBUTEROL
     Dates: start: 20170605, end: 20210218
  13. ROSUVASTATIN 10 MG [Concomitant]
     Active Substance: ROSUVASTATIN
     Dates: start: 20170605, end: 20210217
  14. CALCITRIOL 0.25 MCG [Concomitant]
     Active Substance: CALCITRIOL
     Dates: start: 20200127

REACTIONS (5)
  - Oxygen saturation decreased [None]
  - Skin discolouration [None]
  - Cardiac arrest [None]
  - Respiratory distress [None]
  - Bradycardia [None]

NARRATIVE: CASE EVENT DATE: 20210218
